FAERS Safety Report 23693772 (Version 1)
Quarter: 2024Q1

REPORT INFORMATION
  Report Type: Spontaneous
  Country: US (occurrence: None)
  Receive Date: 20240331
  Receipt Date: 20240331
  Transmission Date: 20240409
  Serious: No
  Sender: FDA-Public Use
  Company Number: None

PATIENT
  Age: 17 Year
  Sex: Male

DRUGS (2)
  1. EPIDIOLEX [Suspect]
     Active Substance: CANNABIDIOL
     Indication: Epilepsy
     Dates: start: 20231220
  2. LAMOTRIGINE [Concomitant]
     Active Substance: LAMOTRIGINE

REACTIONS (7)
  - Poor quality sleep [None]
  - Poor quality sleep [None]
  - Poor quality sleep [None]
  - Initial insomnia [None]
  - Insomnia [None]
  - Irritability [None]
  - Psychomotor hyperactivity [None]

NARRATIVE: CASE EVENT DATE: 20240101
